FAERS Safety Report 6370646-2 (Version None)
Quarter: 2009Q3

REPORT INFORMATION
  Report Type: 
  Country: None (occurrence: None)
  Receive Date: 20090918
  Receipt Date: 20090907
  Transmission Date: 20100115
  Serious: Yes (Death)
  Sender: FDA-Public Use
  Company Number: 2009AL005913

PATIENT
  Age: 76 Year
  Sex: Male
  Weight: 64 kg

DRUGS (1)
  1. IBUPROFEN TABLETS [Suspect]
     Indication: PAIN
     Dosage: 200 MG; PO
     Route: 048
     Dates: start: 20040101, end: 20090811

REACTIONS (1)
  - RENAL FAILURE ACUTE [None]
